FAERS Safety Report 15657301 (Version 1)
Quarter: 2018Q4

REPORT INFORMATION
  Report Type: Report from Study
  Country: IT (occurrence: IT)
  Receive Date: 20181126
  Receipt Date: 20181126
  Transmission Date: 20190205
  Serious: Yes (Death, Other)
  Sender: FDA-Public Use
  Company Number: IT-SAKK-2018SA175347AA

PATIENT
  Sex: Female

DRUGS (5)
  1. ANTI-THYMOCYTE GLOBULIN (RABBIT) NOS [Suspect]
     Active Substance: LAPINE T-LYMPHOCYTE IMMUNE GLOBULIN
     Route: 041
  2. FLUCONAZOLE. [Concomitant]
     Active Substance: FLUCONAZOLE
  3. CASPOFUNGIN [Concomitant]
     Active Substance: CASPOFUNGIN
  4. BASILIXIMAB [Suspect]
     Active Substance: BASILIXIMAB
     Indication: IMMUNOSUPPRESSION
  5. TACROLIMUS. [Suspect]
     Active Substance: TACROLIMUS
     Indication: IMMUNOSUPPRESSION

REACTIONS (6)
  - Multiple organ dysfunction syndrome [Fatal]
  - Aeromonas infection [Unknown]
  - Pseudomonas infection [Unknown]
  - Enterococcal infection [Unknown]
  - Enterobacter infection [Unknown]
  - Fungal infection [Unknown]
